FAERS Safety Report 5409787-2 (Version None)
Quarter: 2007Q3

REPORT INFORMATION
  Report Type: 
  Country: None (occurrence: None)
  Receive Date: 20070809
  Receipt Date: 20070731
  Transmission Date: 20080115
  Serious: Yes (Hospitalization)
  Sender: FDA-Public Use
  Company Number: GB-ROCHE-506931

PATIENT
  Age: 38 Year
  Sex: Male
  Weight: 150 kg

DRUGS (5)
  1. PEGASYS [Suspect]
     Indication: HEPATITIS C
     Route: 058
     Dates: start: 20060727, end: 20070703
  2. COPEGUS [Suspect]
     Indication: HEPATITIS C
     Dosage: DOSE REPORTED AS 1200
     Route: 048
     Dates: start: 20060727, end: 20070625
  3. SPIRONOLACTONE [Concomitant]
     Indication: ASCITES
     Dosage: LONG TERM THERAPY
     Route: 048
  4. PROPANOL [Concomitant]
     Indication: VARICOSE VEIN
     Dosage: LONG TERM THERAPY
     Route: 048
  5. OMEPRAZOLE [Concomitant]
     Indication: OESOPHAGITIS
     Dosage: LONG TERM THERAPY
     Route: 048

REACTIONS (2)
  - DEEP VEIN THROMBOSIS [None]
  - RASH [None]
